FAERS Safety Report 8239268-2 (Version None)
Quarter: 2012Q1

REPORT INFORMATION
  Report Type: 
  Country: None (occurrence: None)
  Receive Date: 20120328
  Receipt Date: 20090508
  Transmission Date: 20120608
  Serious: No
  Sender: FDA-Public Use
  Company Number: 2009BI014858

PATIENT
  Sex: Female

DRUGS (1)
  1. TYSABRI [Suspect]
     Indication: MULTIPLE SCLEROSIS
     Route: 042
     Dates: start: 20070827

REACTIONS (18)
  - DYSURIA [None]
  - DEPRESSION [None]
  - DIVERTICULITIS [None]
  - HEADACHE [None]
  - HAEMANGIOMA [None]
  - ANALGESIC DRUG LEVEL INCREASED [None]
  - BACK PAIN [None]
  - LIVER DISORDER [None]
  - MUSCLE SPASMS [None]
  - MUSCULAR WEAKNESS [None]
  - SINUSITIS [None]
  - RHEUMATOID ARTHRITIS [None]
  - SYSTEMIC LUPUS ERYTHEMATOSUS [None]
  - MULTIPLE SCLEROSIS RELAPSE [None]
  - GENERALISED OEDEMA [None]
  - RENAL DISORDER [None]
  - HYPERTENSION [None]
  - BLOOD CREATININE INCREASED [None]
